FAERS Safety Report 17400821 (Version 1)
Quarter: 2020Q1

REPORT INFORMATION
  Report Type: Spontaneous
  Country: TW (occurrence: TW)
  Receive Date: 20200211
  Receipt Date: 20200211
  Transmission Date: 20200409
  Serious: Yes (Hospitalization)
  Sender: FDA-Public Use
  Company Number: TW-LEADING PHARMA LLC-TW-2020LEALIT00017

PATIENT
  Age: 20 Year
  Sex: Female

DRUGS (6)
  1. COLCHICINE. [Suspect]
     Active Substance: COLCHICINE
  2. FAMOTIDINE. [Suspect]
     Active Substance: FAMOTIDINE
  3. MAGNESIUM OXIDE. [Suspect]
     Active Substance: MAGNESIUM OXIDE
  4. PREDNISOLONE. [Suspect]
     Active Substance: PREDNISOLONE
  5. FOLIC ACID TABLETS USP [Suspect]
     Active Substance: FOLIC ACID
  6. DANAZOL. [Suspect]
     Active Substance: DANAZOL

REACTIONS (1)
  - Toxic epidermal necrolysis [Recovered/Resolved]
